FAERS Safety Report 25052818 (Version 1)
Quarter: 2025Q1

REPORT INFORMATION
  Report Type: Spontaneous
  Country: US (occurrence: US)
  Receive Date: 20250307
  Receipt Date: 20250307
  Transmission Date: 20250408
  Serious: Yes (Other)
  Sender: SANOFI AVENTIS
  Company Number: US-SA-2025SA061065

PATIENT
  Age: 58 Year
  Sex: Female

DRUGS (3)
  1. DUPIXENT [Suspect]
     Active Substance: DUPILUMAB
  2. TYMLOS [Suspect]
     Active Substance: ABALOPARATIDE
     Dosage: 80 UG, QD
     Route: 058
  3. TYMLOS [Suspect]
     Active Substance: ABALOPARATIDE
     Dosage: 80 UG, QD
     Route: 058

REACTIONS (3)
  - Anaphylactic reaction [Unknown]
  - Rhinorrhoea [Unknown]
  - Oropharyngeal pain [Unknown]
